FAERS Safety Report 4379747-1 (Version None)
Quarter: 2004Q2

REPORT INFORMATION
  Report Type: 
  Country: None (occurrence: None)
  Receive Date: 20040617
  Receipt Date: 20040607
  Transmission Date: 20050107
  Serious: Yes (Other)
  Sender: FDA-Public Use
  Company Number: PT-GLAXOSMITHKLINE-B0335557A

PATIENT
  Age: 20 Year
  Sex: Male

DRUGS (3)
  1. VALTREX [Suspect]
     Indication: VARICELLA
     Dosage: 3G PER DAY
     Route: 048
     Dates: start: 20040501, end: 20040503
  2. NIMESULIDE [Concomitant]
     Indication: INFLAMMATION
     Dosage: 300MG PER DAY
     Route: 048
     Dates: start: 20040429, end: 20040508
  3. ACETAMINOPHEN [Concomitant]
     Route: 048
     Dates: start: 20040429, end: 20040508

REACTIONS (1)
  - LOSS OF CONSCIOUSNESS [None]
